FAERS Safety Report 21704959 (Version 1)
Quarter: 2022Q4

REPORT INFORMATION
  Report Type: Report from Study
  Country: TH (occurrence: TH)
  Receive Date: 20221209
  Receipt Date: 20221209
  Transmission Date: 20230113
  Serious: Yes (Other)
  Sender: FDA-Public Use
  Company Number: TH-TAKEDA-2022TUS032235

PATIENT
  Age: 46 Year
  Sex: Male

DRUGS (6)
  1. BRIGATINIB [Suspect]
     Active Substance: BRIGATINIB
     Indication: Non-small cell lung cancer
     Dosage: 180 MILLIGRAM
     Route: 048
     Dates: start: 20220310
  2. BRIGATINIB [Suspect]
     Active Substance: BRIGATINIB
     Dosage: 90 MILLIGRAM
     Route: 048
  3. BRIGATINIB [Suspect]
     Active Substance: BRIGATINIB
     Dosage: 90 MILLIGRAM, QD
     Route: 048
     Dates: start: 20220517
  4. BRIGATINIB [Suspect]
     Active Substance: BRIGATINIB
     Dosage: 120 MILLIGRAM
     Route: 065
  5. BRIGATINIB [Suspect]
     Active Substance: BRIGATINIB
     Dosage: 120 MILLIGRAM, QD
     Route: 048
     Dates: start: 20220526
  6. BRIGATINIB [Suspect]
     Active Substance: BRIGATINIB
     Dosage: 90 MILLIGRAM
     Route: 048

REACTIONS (4)
  - Non-small cell lung cancer [Unknown]
  - Hepatic enzyme increased [Unknown]
  - Headache [Unknown]
  - Fatigue [Unknown]
